FAERS Safety Report 19068674 (Version 1)
Quarter: 2021Q1

REPORT INFORMATION
  Report Type: Spontaneous
  Country: BG (occurrence: BG)
  Receive Date: 20210329
  Receipt Date: 20210329
  Transmission Date: 20210420
  Serious: Yes (Death, Hospitalization)
  Sender: FDA-Public Use
  Company Number: BG-INCYTE CORPORATION-2020IN013382

PATIENT

DRUGS (4)
  1. FURANTHRIL [FUROSEMIDE] [Concomitant]
     Active Substance: FUROSEMIDE
     Indication: CARDIAC FAILURE CHRONIC
     Route: 065
  2. JAKAVI [Suspect]
     Active Substance: RUXOLITINIB
     Indication: MYELOFIBROSIS
     Dosage: 5 MG, BID
     Route: 048
     Dates: start: 201910
  3. DIGOXIN. [Concomitant]
     Active Substance: DIGOXIN
     Indication: CARDIAC FAILURE CHRONIC
     Route: 065
  4. DIURETIDIN [Concomitant]
     Indication: CARDIAC FAILURE CHRONIC
     Route: 065

REACTIONS (2)
  - Anaemia [Unknown]
  - Cardiac failure acute [Fatal]
